FAERS Safety Report 9193398 (Version 2)
Quarter: 2013Q2

REPORT INFORMATION
  Report Type: Spontaneous
  Country: DK (occurrence: DK)
  Receive Date: 20130327
  Receipt Date: 20130403
  Transmission Date: 20140414
  Serious: Yes (Other)
  Sender: FDA-Public Use
  Company Number: DK-ROCHE-1203722

PATIENT
  Age: 40 Year
  Sex: Female

DRUGS (2)
  1. MABTHERA [Suspect]
     Indication: LYMPHOMA
     Route: 065
  2. VINCRISTINE [Suspect]
     Indication: LYMPHOMA
     Route: 065

REACTIONS (2)
  - Cerebral disorder [Not Recovered/Not Resolved]
  - Progressive multifocal leukoencephalopathy [Unknown]
